FAERS Safety Report 10096199 (Version 1)
Quarter: 2014Q2

REPORT INFORMATION
  Report Type: Spontaneous
  Country: US (occurrence: None)
  Receive Date: 20140410
  Receipt Date: 20140410
  Transmission Date: 20141212
  Serious: Yes (Hospitalization)
  Sender: FDA-Public Use
  Company Number: 2013-281

PATIENT
  Age: 64 Year
  Sex: Female

DRUGS (20)
  1. CALCIUM (CALCIUM) [Concomitant]
  2. TYLENOL (PARACETAMOL) [Concomitant]
  3. VENTOLIN (SALBUTAMOL SULFATE) [Concomitant]
  4. FAZACLO (CLOZAPINE, USP) ODT (ORAL DISINTEGRATING TABLET) [Suspect]
     Route: 048
     Dates: start: 20050916
  5. CELEXA (CITALOPRAM HYDROBROMIDE) [Concomitant]
  6. CLONAZEPAM (CLAZEPAM) [Concomitant]
  7. COGENTIN (BENZATROPINE MESILATE) [Concomitant]
  8. SEROQUEL (QUETIAPINE FUMARATE) [Concomitant]
  9. SYMBICORT (BUDESONIDE, FORMOTEROL FUMARATE) [Concomitant]
  10. FERROUS SULFATE (FERROUS SULFATE) [Concomitant]
  11. RANITIDINE (RANITIDINE HYDROCHLORIDE) [Concomitant]
  12. NEXIUM (ESOMEPRAZOLE MAGNESIUM) [Concomitant]
  13. OXYBUTYNIN CHLORIDE (OXYBUTYNIN HYDROCHLORIDE) [Concomitant]
  14. ASPIRIN (ACETYLSALICYLIC ACID) [Concomitant]
  15. BENZTROPINE MESILATE (BENZATROPINE MESILATE) [Concomitant]
  16. MULTIVITAMIN (VITAMINS NOS) [Concomitant]
  17. METFORMIN HCL (METFORMIN HYDROCHLORIDE) [Concomitant]
  18. LISINOPRIL (LISINOPRIL) [Concomitant]
  19. SIMVASTATIN (SIMVASTATIN) [Concomitant]
  20. FOSAMAX PLUS D (ALENDRONATE SODIUM, COLECALCIFEROL) [Concomitant]

REACTIONS (1)
  - Pneumonia [None]
